FAERS Safety Report 4583737-3 (Version None)
Quarter: 2005Q1

REPORT INFORMATION
  Report Type: 
  Country: None (occurrence: None)
  Receive Date: 20050211
  Receipt Date: 20050124
  Transmission Date: 20050727
  Serious: Yes (Hospitalization)
  Sender: FDA-Public Use
  Company Number: EM2004-0663

PATIENT

DRUGS (4)
  1. PROLEUKIN [Suspect]
     Indication: RENAL CELL CARCINOMA STAGE UNSPECIFIED
  2. INTERFERON ALFA (INTERFERON ALFA) [Suspect]
     Indication: RENAL CELL CARCINOMA STAGE UNSPECIFIED
  3. FLUOROURACIL [Suspect]
     Indication: RENAL CELL CARCINOMA STAGE UNSPECIFIED
     Dates: start: 20041213
  4. OPIOIDS () [Suspect]
     Indication: RENAL CELL CARCINOMA STAGE UNSPECIFIED
     Dates: start: 20041213

REACTIONS (13)
  - ANOREXIA [None]
  - BLOOD SODIUM DECREASED [None]
  - DEHYDRATION [None]
  - DEPRESSED LEVEL OF CONSCIOUSNESS [None]
  - DIARRHOEA [None]
  - MOUTH HAEMORRHAGE [None]
  - MUCOSAL INFLAMMATION [None]
  - OVERDOSE [None]
  - PHARYNGITIS [None]
  - PHARYNGOLARYNGEAL PAIN [None]
  - RECTAL HAEMORRHAGE [None]
  - ULCER HAEMORRHAGE [None]
  - VOMITING [None]
